FAERS Safety Report 5112748-4 (Version None)
Quarter: 2006Q3

REPORT INFORMATION
  Report Type: 
  Country: None (occurrence: None)
  Receive Date: 20060919
  Receipt Date: 20060901
  Transmission Date: 20061208
  Serious: Yes (Hospitalization)
  Sender: FDA-Public Use
  Company Number: ENT 2004-0010

PATIENT
  Age: 55 Year
  Sex: Male

DRUGS (11)
  1. COMTAN [Suspect]
     Indication: PARKINSON'S DISEASE
     Dosage: 800 MG ORAL
     Route: 048
     Dates: start: 20030410, end: 20040106
  2. PARLODEL [Concomitant]
  3. PURSENNID [Concomitant]
  4. NEO DOPASTON [Concomitant]
  5. CABASER [Concomitant]
  6. ARTANE [Concomitant]
  7. PERMAX [Concomitant]
  8. SELEGILINE HYDROCHLORIDE [Concomitant]
  9. POLLAKISU [Concomitant]
  10. RIVOTRIL [Concomitant]
  11. CEFAMEZIN [Concomitant]

REACTIONS (10)
  - CONDITION AGGRAVATED [None]
  - DRUG DOSE OMISSION [None]
  - DYSKINESIA [None]
  - HAEMORRHAGE [None]
  - INGUINAL HERNIA [None]
  - POST PROCEDURAL HAEMATOMA [None]
  - PROCEDURAL PAIN [None]
  - PYREXIA [None]
  - SCROTAL HAEMATOCOELE [None]
  - WOUND COMPLICATION [None]
